FAERS Safety Report 7387997-5 (Version None)
Quarter: 2011Q2

REPORT INFORMATION
  Report Type: 
  Country: None (occurrence: None)
  Receive Date: 20110401
  Receipt Date: 20110322
  Transmission Date: 20111010
  Serious: Yes (Hospitalization)
  Sender: FDA-Public Use
  Company Number: NL-TEVA-273588ISR

PATIENT
  Age: 69 Year
  Sex: Male

DRUGS (10)
  1. CLOPIDOGREL [Concomitant]
     Route: 048
     Dates: start: 20011221
  2. PERINDOPRIL (ARGININE) [Concomitant]
     Dates: start: 20080828
  3. ACENOCOUMAROL [Concomitant]
     Dates: start: 20081105
  4. DIGOXIN [Suspect]
     Indication: CARDIAC FAILURE
     Route: 048
     Dates: start: 20101210, end: 20101220
  5. AMLODIPINE [Concomitant]
     Route: 048
     Dates: start: 20100526
  6. SIMVASTATIN [Concomitant]
     Route: 048
     Dates: start: 20020201
  7. TRIAMTERENE [Concomitant]
     Route: 048
     Dates: start: 20080718
  8. FUROSEMIDE [Concomitant]
     Dates: start: 20071210
  9. SOTALOL [Suspect]
     Indication: CARDIAC FAILURE
     Route: 048
     Dates: start: 20101202, end: 20101220
  10. EPLERENONE [Suspect]
     Indication: CARDIAC FAILURE
     Route: 048
     Dates: start: 20101028, end: 20101220

REACTIONS (3)
  - DIZZINESS [None]
  - RENAL FAILURE ACUTE [None]
  - BRADYCARDIA [None]
